FAERS Safety Report 7835411-5 (Version None)
Quarter: 2011Q4

REPORT INFORMATION
  Report Type: 
  Country: None (occurrence: None)
  Receive Date: 20111024
  Receipt Date: 20111019
  Transmission Date: 20120403
  Serious: Yes (Disabling, Other)
  Sender: FDA-Public Use
  Company Number: BR-ABBOTT-11P-020-0700576-00

PATIENT
  Sex: Female
  Weight: 90 kg

DRUGS (9)
  1. METFORMIN HCL [Concomitant]
     Indication: DIABETES MELLITUS
     Dosage: 1-2 TABS DAILY, 1 AFTER LUNCH AND DINNER
     Route: 048
     Dates: start: 20060101
  2. UNKNOWN MEDICATION [Suspect]
     Indication: PRODUCT USED FOR UNKNOWN INDICATION
  3. CAPTOPRIL [Concomitant]
     Indication: HYPERTENSION
     Route: 048
  4. PURAN [Concomitant]
     Indication: THYROID DISORDER
     Route: 048
     Dates: start: 20090101
  5. FOLIC ACID [Concomitant]
     Indication: ANTICOAGULANT THERAPY
     Route: 048
     Dates: start: 20030101
  6. OPTIVE [Concomitant]
     Indication: VISUAL ACUITY REDUCED
  7. HUMIRA [Suspect]
     Indication: RHEUMATOID ARTHRITIS
     Route: 058
     Dates: start: 20090101
  8. CLORANA [Concomitant]
     Indication: DIURETIC THERAPY
     Route: 048
     Dates: start: 20010101
  9. OPTIVE [Concomitant]
     Indication: EYE INFECTION

REACTIONS (4)
  - VISUAL ACUITY REDUCED [None]
  - EYE INFECTION [None]
  - PAIN IN EXTREMITY [None]
  - VISION BLURRED [None]
